FAERS Safety Report 10376734 (Version 1)
Quarter: 2014Q3

REPORT INFORMATION
  Report Type: Spontaneous
  Country: US (occurrence: None)
  Receive Date: 20140807
  Receipt Date: 20140807
  Transmission Date: 20150326
  Serious: Yes (Congenital Anomaly, Other)
  Sender: FDA-Public Use
  Company Number: 2014070090

PATIENT
  Sex: Female

DRUGS (1)
  1. PREFERA OB PLUS DHA [Suspect]
     Active Substance: DOCONEXENT\MINERALS\VITAMINS
     Route: 064
     Dates: start: 2012, end: 2013

REACTIONS (11)
  - Mentally late developer [None]
  - Low birth weight baby [None]
  - Pulmonary valve stenosis [None]
  - Atrial septal defect [None]
  - Unresponsive to stimuli [None]
  - Sleep apnoea syndrome [None]
  - Convulsion [None]
  - Sensory loss [None]
  - Maternal drugs affecting foetus [None]
  - Foetal exposure during pregnancy [None]
  - Cyanosis neonatal [None]

NARRATIVE: CASE EVENT DATE: 2012
